FAERS Safety Report 17884784 (Version 2)
Quarter: 2020Q2

REPORT INFORMATION
  Report Type: Spontaneous
  Country: US (occurrence: US)
  Receive Date: 20200611
  Receipt Date: 20200616
  Transmission Date: 20200714
  Serious: No
  Sender: FDA-Public Use
  Company Number: US-PFIZER INC-2019391009

PATIENT
  Age: 35 Year
  Sex: Female

DRUGS (3)
  1. GENOTROPIN MQ [Suspect]
     Active Substance: SOMATROPIN
     Dosage: 0.6 MG, ALTERNATE DAY
  2. GENOTROPIN MQ [Suspect]
     Active Substance: SOMATROPIN
     Indication: BLOOD GROWTH HORMONE ABNORMAL
     Dosage: 0.4 MG, DAILY
  3. GENOTROPIN MQ [Suspect]
     Active Substance: SOMATROPIN
     Dosage: 0.4 MG, ALTERNATE DAY

REACTIONS (8)
  - Product storage error [Unknown]
  - Wrong technique in product usage process [Unknown]
  - Malaise [Unknown]
  - Product administration error [Unknown]
  - Mental fatigue [Unknown]
  - Weight increased [Unknown]
  - Insulin-like growth factor increased [Unknown]
  - Hypermobility syndrome [Unknown]
